FAERS Safety Report 24828487 (Version 2)
Quarter: 2025Q1

REPORT INFORMATION
  Report Type: Spontaneous
  Country: US (occurrence: US)
  Receive Date: 20250110
  Receipt Date: 20250129
  Transmission Date: 20250409
  Serious: Yes (Hospitalization, Other)
  Sender: MALLINCKRODT
  Company Number: US-MALLINCKRODT-MNK202500062

PATIENT
  Age: 61 Year
  Sex: Female

DRUGS (1)
  1. CORTICOTROPIN [Suspect]
     Active Substance: CORTICOTROPIN
     Indication: Illness
     Route: 058
     Dates: start: 20220705

REACTIONS (5)
  - Blood pressure decreased [Unknown]
  - Neuropathy peripheral [Unknown]
  - Limb operation [Unknown]
  - Pneumonia [Unknown]
  - Localised infection [Unknown]

NARRATIVE: CASE EVENT DATE: 20250101
